FAERS Safety Report 26040981 (Version 1)
Quarter: 2025Q4

REPORT INFORMATION
  Report Type: Spontaneous
  Country: US (occurrence: None)
  Receive Date: 20251112
  Receipt Date: 20251112
  Transmission Date: 20260118
  Serious: Yes (Hospitalization)
  Sender: FDA-CTU
  Company Number: None

PATIENT
  Age: 22 Year
  Sex: Female
  Weight: 69.3 kg

DRUGS (3)
  1. BENZONATATE [Suspect]
     Active Substance: BENZONATATE
     Indication: Cough
     Dosage: 1 CAPSULE(S)  3 TIMES A DAY ORAL ?
     Route: 048
     Dates: start: 20251108, end: 20251111
  2. PROZAC [Suspect]
     Active Substance: FLUOXETINE HYDROCHLORIDE
  3. DECADRON [Suspect]
     Active Substance: DEXAMETHASONE

REACTIONS (7)
  - Sinus tachycardia [None]
  - Oropharyngeal pain [None]
  - Dizziness [None]
  - Anxiety [None]
  - Dyspnoea [None]
  - Pericarditis [None]
  - Myocardial infarction [None]

NARRATIVE: CASE EVENT DATE: 20251110
